FAERS Safety Report 4319435-0 (Version None)
Quarter: 2004Q1

REPORT INFORMATION
  Report Type: 
  Country: None (occurrence: None)
  Receive Date: 20040318
  Receipt Date: 20040318
  Transmission Date: 20041129
  Serious: Yes (Other)
  Sender: FDA-Public Use
  Company Number: None

PATIENT
  Age: 30 Year
  Sex: Female
  Weight: 52.1637 kg

DRUGS (7)
  1. GLYTONE 20% GLYCOLIC ACID PEEL GENESIS PHARMACEUTICAL [Suspect]
     Indication: ACNE
     Dosage: 1 PEEL 4 MINUTES TOPICAL
     Route: 061
     Dates: start: 20040219, end: 20040219
  2. GLYTONE 20% GLYCOLIC ACID PEEL GENESIS PHARMACEUTICAL [Suspect]
     Indication: SCAR
     Dosage: 1 PEEL 4 MINUTES TOPICAL
     Route: 061
     Dates: start: 20040219, end: 20040219
  3. DIFFERIN [Suspect]
     Indication: ACNE
     Dosage: EVERY NIGHT SPREAD ON TOPICAL
     Route: 061
     Dates: start: 20010701, end: 20040226
  4. MINOCYCLINE HCL [Concomitant]
  5. BENZACLIN [Concomitant]
  6. ORTHO TRI-CYCLEN [Concomitant]
  7. DIFFERIN [Concomitant]

REACTIONS (1)
  - SCAR [None]
